FAERS Safety Report 13142523 (Version 2)
Quarter: 2017Q1

REPORT INFORMATION
  Report Type: Spontaneous
  Country: US (occurrence: US)
  Receive Date: 20170123
  Receipt Date: 20170202
  Transmission Date: 20170428
  Serious: Yes (Other)
  Sender: FDA-Public Use
  Company Number: US-BAUSCH-BL-2017-001102

PATIENT
  Age: 90 Year
  Sex: Male
  Weight: 77.18 kg

DRUGS (1)
  1. NEOMYCIN AND POLYMYXIN B SULFATES AND HYDROCORTISONE [Suspect]
     Active Substance: HYDROCORTISONE\NEOMYCIN SULFATE\POLYMYXIN B SULFATE
     Indication: EAR INFECTION
     Dosage: 3 DROPS IN RIGHT EAR 3 TIMES DAILY
     Route: 001
     Dates: start: 20170105

REACTIONS (7)
  - Self-injurious ideation [Not Recovered/Not Resolved]
  - Ear pain [Not Recovered/Not Resolved]
  - Infection [Not Recovered/Not Resolved]
  - Insomnia [Recovered/Resolved]
  - Drug ineffective [Unknown]
  - Expired product administered [Unknown]
  - Application site irritation [Unknown]

NARRATIVE: CASE EVENT DATE: 20170109
